FAERS Safety Report 4514444-0 (Version None)
Quarter: 2004Q4

REPORT INFORMATION
  Report Type: 
  Country: None (occurrence: None)
  Receive Date: 20040928
  Receipt Date: 20040603
  Transmission Date: 20050328
  Serious: No
  Sender: FDA-Public Use
  Company Number: 04P-163-0262703-00

PATIENT
  Age: 57 Year
  Sex: Female

DRUGS (11)
  1. HUMIRA [Suspect]
     Indication: RHEUMATOID ARTHRITIS
     Dosage: 40 MG, 1 IN 2 WK, SUBCUTANEOUS
     Route: 058
     Dates: start: 20030601, end: 20031201
  2. HUMIRA [Suspect]
     Indication: RHEUMATOID ARTHRITIS
     Dosage: 40 MG, 1 IN 2 WK, SUBCUTANEOUS
     Route: 058
     Dates: start: 20040201
  3. METHOTREXATE [Concomitant]
  4. PEDNISONE [Concomitant]
  5. BUCINDOLOL  HYDROCHLORIDE [Concomitant]
  6. TRAMADOL HCL [Concomitant]
  7. LEVOTHYROXINE SODIUM [Concomitant]
  8. CO-DIOVAN [Concomitant]
  9. VENLAFAXINE HYDROCHLORIDE [Concomitant]
  10. OSTEO BI-FLEX [Concomitant]
  11. CALCIUM [Concomitant]

REACTIONS (1)
  - DRUG INEFFECTIVE [None]
